FAERS Safety Report 4294722-3 (Version None)
Quarter: 2004Q1

REPORT INFORMATION
  Report Type: 
  Country: None (occurrence: None)
  Receive Date: 20040213
  Receipt Date: 20040128
  Transmission Date: 20041129
  Serious: Yes (Hospitalization)
  Sender: FDA-Public Use
  Company Number: ES-ROCHE-357336

PATIENT
  Age: 60 Year
  Sex: Female
  Weight: 57 kg

DRUGS (7)
  1. DACLIZUMAB [Suspect]
     Route: 042
  2. MYCOPHENOLATE MOFETIL [Suspect]
     Route: 048
     Dates: start: 20040125
  3. CYCLOSPORINE [Suspect]
     Route: 048
     Dates: start: 20040125
  4. PREDNISONE [Suspect]
     Route: 042
     Dates: start: 20040125, end: 20040125
  5. PREDNISONE [Suspect]
     Route: 042
     Dates: start: 20040126, end: 20040126
  6. PREDNISONE [Suspect]
     Route: 048
     Dates: start: 20040127
  7. AZACTAM [Concomitant]
     Route: 042
     Dates: start: 20040125, end: 20040126

REACTIONS (3)
  - GRAFT DYSFUNCTION [None]
  - HAEMODIALYSIS [None]
  - VESICAL FISTULA [None]
